FAERS Safety Report 4872626-2 (Version None)
Quarter: 2006Q1

REPORT INFORMATION
  Report Type: 
  Country: None (occurrence: None)
  Receive Date: 20060105
  Receipt Date: 20050111
  Transmission Date: 20060701
  Serious: Yes (Hospitalization, Disabling)
  Sender: FDA-Public Use
  Company Number: NZ-ABBOTT-05P-118-0286027-00

PATIENT
  Sex: Male

DRUGS (5)
  1. FENOFIBRATE [Suspect]
     Indication: DYSLIPIDAEMIA
     Route: 048
     Dates: start: 20000419
  2. GLIPIZIDE [Concomitant]
     Indication: DRUG USE FOR UNKNOWN INDICATION
     Dates: start: 19950401
  3. METFORMIN [Concomitant]
     Indication: DIABETES MELLITUS
     Dates: start: 20030301
  4. CILAZAPRIL [Concomitant]
     Indication: HYPERTENSION
     Dates: start: 20030101
  5. BENDROFLUMETHIAZIDE [Concomitant]
     Indication: HYPERTENSION
     Dates: start: 20030501

REACTIONS (4)
  - APRAXIA [None]
  - DEMENTIA [None]
  - DYSPHASIA [None]
  - NEUROLOGICAL SYMPTOM [None]
